FAERS Safety Report 4739813-5 (Version None)
Quarter: 2005Q3

REPORT INFORMATION
  Report Type: 
  Country: None (occurrence: None)
  Receive Date: 20050810
  Receipt Date: 20050516
  Transmission Date: 20060218
  Serious: No
  Sender: FDA-Public Use
  Company Number: US-GLAXOSMITHKLINE-A0558795A

PATIENT
  Age: 44 Year
  Sex: Male

DRUGS (1)
  1. PAXIL [Suspect]
     Dosage: 10MG PER DAY
     Route: 048
     Dates: start: 20050513, end: 20050514

REACTIONS (3)
  - CONFUSIONAL STATE [None]
  - DIZZINESS [None]
  - NAUSEA [None]
